FAERS Safety Report 8118205-5 (Version None)
Quarter: 2012Q1

REPORT INFORMATION
  Report Type: 
  Country: None (occurrence: None)
  Receive Date: 20120131
  Receipt Date: 20120126
  Transmission Date: 20120608
  Serious: Yes (Hospitalization)
  Sender: FDA-Public Use
  Company Number: 2012SP005076

PATIENT
  Age: 56 Year
  Sex: Male
  Weight: 71 kg

DRUGS (3)
  1. PEG-INTRON [Suspect]
     Indication: PRODUCT USED FOR UNKNOWN INDICATION
     Dosage: 1.5 MCG/KG; QW; SC
     Route: 058
     Dates: start: 20120118
  2. REBETOL [Suspect]
     Indication: PRODUCT USED FOR UNKNOWN INDICATION
     Dosage: 800 MG; QD; PO
     Route: 048
     Dates: start: 20120118
  3. TELAVIC (TELAPREVIR) (INVESTIGATIONAL DRUG) [Suspect]
     Indication: PRODUCT USED FOR UNKNOWN INDICATION
     Dosage: 2250 MG; PO
     Route: 048
     Dates: start: 20120118, end: 20120119

REACTIONS (1)
  - DERMATITIS EXFOLIATIVE [None]
